FAERS Safety Report 16732988 (Version 3)
Quarter: 2019Q3

REPORT INFORMATION
  Report Type: Spontaneous
  Country: IT (occurrence: IT)
  Receive Date: 20190823
  Receipt Date: 20190912
  Transmission Date: 20191005
  Serious: Yes (Hospitalization, Other)
  Sender: FDA-Public Use
  Company Number: IT-ASTELLAS-2019US033547

PATIENT
  Age: 22 Year
  Sex: Male

DRUGS (4)
  1. ENVARSUS XR [Interacting]
     Active Substance: TACROLIMUS
     Indication: LIVER TRANSPLANT
  2. MYCOPHENOLATE MOFETIL. [Suspect]
     Active Substance: MYCOPHENOLATE MOFETIL
     Indication: IMMUNOSUPPRESSANT DRUG THERAPY
     Dosage: UNK
     Route: 065
  3. ENVARSUS XR [Suspect]
     Active Substance: TACROLIMUS
     Indication: IMMUNOSUPPRESSANT DRUG THERAPY
     Dosage: UNK
     Route: 065
  4. MYCOPHENOLATE MOFETIL. [Suspect]
     Active Substance: MYCOPHENOLATE MOFETIL
     Indication: LIVER TRANSPLANT

REACTIONS (8)
  - Hepatic enzyme increased [Recovering/Resolving]
  - Immunosuppressant drug level decreased [Recovered/Resolved]
  - Drug interaction [Recovered/Resolved]
  - Haemorrhagic arteriovenous malformation [Unknown]
  - Haemoptysis [Recovered/Resolved]
  - False negative investigation result [Recovered/Resolved]
  - Hepatotoxicity [Recovered/Resolved]
  - Liver transplant rejection [Recovered/Resolved]
